FAERS Safety Report 7763067-9 (Version None)
Quarter: 2011Q3

REPORT INFORMATION
  Report Type: 
  Country: None (occurrence: None)
  Receive Date: 20110920
  Receipt Date: 20110909
  Transmission Date: 20111222
  Serious: Yes (Hospitalization)
  Sender: FDA-Public Use
  Company Number: GB-PFIZER INC-2011221580

PATIENT
  Age: 75 Year
  Sex: Male

DRUGS (7)
  1. IBUPROFEN [Suspect]
     Indication: PAIN
     Dosage: UNK
     Route: 048
     Dates: start: 20110829, end: 20110902
  2. ASPIRIN [Suspect]
     Indication: PRODUCT USED FOR UNKNOWN INDICATION
     Dosage: 75 MG, 1X/DAY
  3. FUROSEMIDE [Concomitant]
  4. TAMSULOSIN [Concomitant]
  5. RAMIPRIL [Concomitant]
  6. FINASTERIDE [Concomitant]
  7. SIMVASTATIN [Concomitant]

REACTIONS (3)
  - GASTROINTESTINAL HAEMORRHAGE [None]
  - FAECES DISCOLOURED [None]
  - HAEMOGLOBIN DECREASED [None]
